FAERS Safety Report 4864852-3 (Version None)
Quarter: 2005Q4

REPORT INFORMATION
  Report Type: 
  Country: None (occurrence: None)
  Receive Date: 20051201
  Receipt Date: 20050719
  Transmission Date: 20060501
  Serious: No
  Sender: FDA-Public Use
  Company Number: 2005PV000469

PATIENT
  Age: 64 Year
  Sex: Male
  Weight: 87.9978 kg

DRUGS (16)
  1. BYETTA [Suspect]
     Indication: DIABETES MELLITUS NON-INSULIN-DEPENDENT
     Dosage: 5 MCG;BID;SC
     Route: 058
     Dates: start: 20050715
  2. AVANDIA [Concomitant]
  3. METFORMIN HCL [Concomitant]
  4. HUMALOG MIX 75/25 [Concomitant]
  5. IPRATROPIUM BROMIDE [Concomitant]
  6. ALLEGRA [Concomitant]
  7. QUININE SULFATE [Concomitant]
  8. NIASPAN [Concomitant]
  9. ZOCOR [Concomitant]
  10. TOPROL-XL [Concomitant]
  11. FOLIC ACID [Concomitant]
  12. DYNARCIRC CR [Concomitant]
  13. LISINOPRIL [Concomitant]
  14. POTASSIUM [Concomitant]
  15. VIAGRA [Concomitant]
  16. INDAPAMIDE [Concomitant]

REACTIONS (4)
  - BLOOD GLUCOSE DECREASED [None]
  - DECREASED APPETITE [None]
  - DRUG INEFFECTIVE [None]
  - WEIGHT DECREASED [None]
